FAERS Safety Report 10058518 (Version 1)
Quarter: 2014Q2

REPORT INFORMATION
  Report Type: Spontaneous
  Country: US (occurrence: US)
  Receive Date: 20140404
  Receipt Date: 20140404
  Transmission Date: 20141212
  Serious: Yes (Other)
  Sender: FDA-Public Use
  Company Number: US-BAYER-2014-048396

PATIENT
  Age: 39 Year
  Sex: Female

DRUGS (8)
  1. YASMIN [Suspect]
     Indication: ABDOMINAL PAIN
  2. XANAX [Concomitant]
  3. HYDROCODONE/ACETAMINOPHEN [Concomitant]
  4. NAPROXEN [Concomitant]
  5. FLUOXETINE [Concomitant]
  6. MOTRIN [Concomitant]
  7. MIDOL [ACETYLSALICYLIC ACID,CAFFEINE,CINNAMEDRINE] [Concomitant]
  8. ADVIL [Concomitant]

REACTIONS (1)
  - Pulmonary embolism [Recovered/Resolved]
